FAERS Safety Report 13559381 (Version 1)
Quarter: 2017Q2

REPORT INFORMATION
  Report Type: Spontaneous
  Country: US (occurrence: US)
  Receive Date: 20170518
  Receipt Date: 20170518
  Transmission Date: 20170830
  Serious: No
  Sender: FDA-Public Use
  Company Number: US-LUPIN PHARMACEUTICALS INC.-2017-01569

PATIENT
  Age: 27 Year
  Sex: Female
  Weight: 56.24 kg

DRUGS (4)
  1. QUETIAPINE TABLETS USP, 100 MG [Suspect]
     Active Substance: QUETIAPINE
     Indication: GENERALISED ANXIETY DISORDER
  2. QUETIAPINE TABLETS USP, 100 MG [Suspect]
     Active Substance: QUETIAPINE
     Indication: MAJOR DEPRESSION
     Dosage: UNK
  3. QUETIAPINE TABLETS USP, 100 MG [Suspect]
     Active Substance: QUETIAPINE
     Indication: POST-TRAUMATIC STRESS DISORDER
     Dosage: 100 MG, QHS
     Route: 048
     Dates: start: 201701
  4. QUETIAPINE TABLETS USP, 100 MG [Suspect]
     Active Substance: QUETIAPINE
     Indication: BORDERLINE PERSONALITY DISORDER

REACTIONS (3)
  - Somnambulism [Recovered/Resolved]
  - Traumatic tooth displacement [Recovering/Resolving]
  - Fall [Recovered/Resolved]

NARRATIVE: CASE EVENT DATE: 20170312
